FAERS Safety Report 10433557 (Version 1)
Quarter: 2014Q3

REPORT INFORMATION
  Report Type: Spontaneous
  Country: US (occurrence: None)
  Receive Date: 20140904
  Receipt Date: 20140904
  Transmission Date: 20150326
  Serious: Yes (Life-Threatening, Hospitalization)
  Sender: FDA-Public Use
  Company Number: None

PATIENT
  Age: 69 Year
  Sex: Male
  Weight: 105.7 kg

DRUGS (1)
  1. BIVALIRUDIN [Suspect]
     Active Substance: BIVALIRUDIN
     Indication: DEEP VEIN THROMBOSIS
     Route: 042
     Dates: start: 20140827, end: 20140829

REACTIONS (2)
  - Haemorrhage [None]
  - Pericardial effusion [None]

NARRATIVE: CASE EVENT DATE: 20140829
